FAERS Safety Report 7174712-3 (Version None)
Quarter: 2010Q4

REPORT INFORMATION
  Report Type: 
  Country: None (occurrence: None)
  Receive Date: 20101219
  Receipt Date: 20100407
  Transmission Date: 20110411
  Serious: No
  Sender: FDA-Public Use
  Company Number: US-AMGEN-KDL403526

PATIENT

DRUGS (5)
  1. ENBREL [Suspect]
     Indication: RHEUMATOID ARTHRITIS
     Dosage: 50 MG, QWK
     Route: 058
  2. ADALIMUMAB [Suspect]
  3. REMICADE [Suspect]
  4. ABATACEPT (BRISTOL-MYERS SQUIBB) [Suspect]
  5. METHOTREXATE [Concomitant]
     Dosage: 10 MG, QWK
     Route: 048
     Dates: start: 20070101

REACTIONS (8)
  - ARTHRALGIA [None]
  - ASTHENIA [None]
  - INJECTION SITE ERYTHEMA [None]
  - INJECTION SITE RASH [None]
  - INJECTION SITE REACTION [None]
  - PAIN [None]
  - PAIN IN EXTREMITY [None]
  - SWELLING [None]
